FAERS Safety Report 18215578 (Version 1)
Quarter: 2020Q3

REPORT INFORMATION
  Report Type: Spontaneous
  Country: GB (occurrence: GB)
  Receive Date: 20200901
  Receipt Date: 20200901
  Transmission Date: 20201103
  Serious: Yes (Hospitalization, Other)
  Sender: FDA-Public Use
  Company Number: GB-SUN PHARMACEUTICAL INDUSTRIES LTD-2020R1-257046

PATIENT
  Age: 53 Year
  Sex: Male

DRUGS (2)
  1. GROWTH HORMONE [Suspect]
     Active Substance: SOMATROPIN
     Indication: PRODUCT USED FOR UNKNOWN INDICATION
     Dosage: 2 IU/DAY(6?WKS ON AND 4WKS OFF)
     Route: 065
  2. TESTOSTERONE. [Suspect]
     Active Substance: TESTOSTERONE
     Indication: PRODUCT USED FOR UNKNOWN INDICATION
     Dosage: 350 MILLIGRAM, DAILY(6 WK ON AND 4 WK OFF)
     Route: 065

REACTIONS (4)
  - Rhabdomyolysis [Unknown]
  - Myositis [Unknown]
  - Hypercalcaemia [Unknown]
  - Focal segmental glomerulosclerosis [Unknown]
